FAERS Safety Report 13772415 (Version 1)
Quarter: 2017Q3

REPORT INFORMATION
  Report Type: Spontaneous
  Country: DE (occurrence: DE)
  Receive Date: 20170720
  Receipt Date: 20170720
  Transmission Date: 20171127
  Serious: Yes (Life-Threatening, Hospitalization)
  Sender: FDA-Public Use
  Company Number: DE-PURDUE-GBR-2017-0046890

PATIENT
  Age: 57 Year
  Sex: Female

DRUGS (2)
  1. TARGIN [Suspect]
     Active Substance: NALOXONE HYDROCHLORIDE\OXYCODONE HYDROCHLORIDE
     Indication: PAIN
     Dosage: 5/2.5MG, DAILY
     Route: 065
  2. NOVALGIN [Suspect]
     Active Substance: METAMIZOLE SODIUM
     Indication: PAIN
     Route: 065

REACTIONS (3)
  - Ileus paralytic [Recovered/Resolved]
  - Pneumonia aspiration [Recovered/Resolved]
  - Incorrect drug administration duration [Unknown]
